FAERS Safety Report 17009410 (Version 2)
Quarter: 2019Q4

REPORT INFORMATION
  Report Type: Spontaneous
  Country: US (occurrence: US)
  Receive Date: 20191108
  Receipt Date: 20191218
  Transmission Date: 20200122
  Serious: No
  Sender: FDA-Public Use
  Company Number: US-BIOGEN-2019BI00802190

PATIENT
  Sex: Female

DRUGS (2)
  1. TECFIDERA [Suspect]
     Active Substance: DIMETHYL FUMARATE
     Indication: MULTIPLE SCLEROSIS
     Dosage: STARTING DOSE
     Route: 048
     Dates: start: 20190930, end: 20191006
  2. TECFIDERA [Suspect]
     Active Substance: DIMETHYL FUMARATE
     Dosage: MAINTENANCE DOSE
     Route: 048
     Dates: start: 20191007

REACTIONS (13)
  - Product dose omission [Unknown]
  - Gastrooesophageal reflux disease [Not Recovered/Not Resolved]
  - Hot flush [Not Recovered/Not Resolved]
  - Visual impairment [Not Recovered/Not Resolved]
  - Spinal pain [Not Recovered/Not Resolved]
  - Arthritis [Not Recovered/Not Resolved]
  - Feeling hot [Recovered/Resolved]
  - Pain [Not Recovered/Not Resolved]
  - Headache [Not Recovered/Not Resolved]
  - Flatulence [Not Recovered/Not Resolved]
  - Stress [Unknown]
  - Inappropriate schedule of product administration [Unknown]
  - Abdominal distension [Not Recovered/Not Resolved]
